FAERS Safety Report 6637016-0 (Version None)
Quarter: 2010Q1

REPORT INFORMATION
  Report Type: 
  Country: None (occurrence: None)
  Receive Date: 20100301
  Receipt Date: 20091204
  Transmission Date: 20100710
  Serious: Yes (Other)
  Sender: FDA-Public Use
  Company Number: WAES 0912USA00851

PATIENT
  Age: 50 Year
  Sex: Female
  Weight: 87.5442 kg

DRUGS (1)
  1. INJ IVEMEND UNK [Suspect]
     Dosage: 115 MG/1X/IV
     Route: 042
     Dates: start: 20091014, end: 20091014

REACTIONS (3)
  - BACK PAIN [None]
  - ERYTHEMA [None]
  - URTICARIA [None]
